FAERS Safety Report 9373822 (Version 2)
Quarter: 2013Q3

REPORT INFORMATION
  Report Type: Spontaneous
  Country: GB (occurrence: GB)
  Receive Date: 20130628
  Receipt Date: 20130729
  Transmission Date: 20140515
  Serious: Yes (Other)
  Sender: FDA-Public Use
  Company Number: GB-AMGEN-GBRSP2013041987

PATIENT
  Age: 55 Year
  Sex: Female
  Weight: 54 kg

DRUGS (13)
  1. PROLIA [Suspect]
     Indication: OSTEOPOROSIS
     Dosage: UNK UNK, Q6MO
     Route: 065
     Dates: start: 201108
  2. PIROXICAM [Concomitant]
     Dosage: 200 MG, QD
  3. SPIRONOLACTONE [Concomitant]
     Dosage: 50 MG, QD
  4. ASPIRIN [Concomitant]
     Dosage: 75 MG, QD
  5. LANSOPRAZOLE [Concomitant]
     Dosage: 15 MG, QD
  6. AMITRIPTYLINE [Concomitant]
     Dosage: 10 MG, QD
  7. AMLODIPINE [Concomitant]
     Dosage: 5 MG, QD
  8. METHOTREXATE [Concomitant]
     Dosage: 20 MG, QWK
  9. RITUXIMAB [Concomitant]
     Dosage: UNK UNK, Q9MO
     Route: 042
  10. FOLIC ACID [Concomitant]
     Dosage: 5 MG, QWK
  11. CO-CODAMOL [Concomitant]
     Dosage: UNK UNK, BID 50/500
  12. VITAMIN D                          /00318501/ [Concomitant]
     Dosage: UNK UNK, QHS
  13. CALCICHEW [Concomitant]
     Dosage: UNK UNK, QHS

REACTIONS (1)
  - Alopecia [Not Recovered/Not Resolved]
